FAERS Safety Report 7020185-0 (Version None)
Quarter: 2010Q3

REPORT INFORMATION
  Report Type: 
  Country: None (occurrence: None)
  Receive Date: 20100927
  Receipt Date: 20100916
  Transmission Date: 20110219
  Serious: Yes (Death, Hospitalization)
  Sender: FDA-Public Use
  Company Number: 2009AC000526

PATIENT
  Age: 61 Year
  Sex: Female

DRUGS (85)
  1. DIGOXIN [Suspect]
     Dosage: 125 MCG;QD;PO
     Route: 048
  2. DIGOXIN [Suspect]
     Dosage: 0.25M G;QOD;PO
     Route: 048
     Dates: start: 20050901
  3. DIGOXIN [Suspect]
     Dosage: .125 MG;QOD;PO
     Route: 048
     Dates: start: 20050901
  4. DIGOXIN [Suspect]
     Dosage: 0.375 MG;QD;PO
     Route: 048
     Dates: start: 19930101
  5. PROZAC [Concomitant]
  6. K-DUR [Concomitant]
  7. LASIX [Concomitant]
  8. NORVASC [Concomitant]
  9. CARDURA [Concomitant]
  10. ANTARA (MICRONIZED) [Concomitant]
  11. COREG [Concomitant]
  12. ZYVOX [Concomitant]
  13. BENICAR [Concomitant]
  14. BACTROBAN [Concomitant]
  15. PLAVIX [Concomitant]
  16. MONOPRIL [Concomitant]
  17. NASONEX [Concomitant]
  18. PRAVACHOL [Concomitant]
  19. KLOR-CON [Concomitant]
  20. PREDNISONE [Concomitant]
  21. AMBIEN [Concomitant]
  22. FLUOXETINE [Concomitant]
  23. PRAVASTATIN [Concomitant]
  24. AVELOX [Concomitant]
  25. DOXAZOSIN MESYLATE [Concomitant]
  26. ZETIA [Concomitant]
  27. AMLODIPINE [Concomitant]
  28. TRIMOX [Concomitant]
  29. ENALAPRIL MALEATE [Concomitant]
  30. FOLIC ACID [Concomitant]
  31. ZOLOFT [Concomitant]
  32. CALCIUM [Concomitant]
  33. HUMALOG [Concomitant]
  34. GLIPIZIDE [Concomitant]
  35. LOPID [Concomitant]
  36. VERELAN [Concomitant]
  37. FOSINOPRIL [Concomitant]
  38. DYNACIRC [Concomitant]
  39. PRAVACHOL [Concomitant]
  40. CARDURA [Concomitant]
  41. VITAMIN D [Concomitant]
  42. ASCORBIC ACID [Concomitant]
  43. PROZAC [Concomitant]
  44. BENICAR [Concomitant]
  45. NORVASC [Concomitant]
  46. COREG [Concomitant]
  47. ASPIRIN [Concomitant]
  48. ANTARA (MICRONIZED) [Concomitant]
  49. ZETIA [Concomitant]
  50. NASONEX [Concomitant]
  51. FOLTX [Concomitant]
  52. OMACOR [Concomitant]
  53. ZYRTEC [Concomitant]
  54. MIACALCIN [Concomitant]
  55. PROZAC [Concomitant]
  56. PRAVACHOL [Concomitant]
  57. LISPRO [Concomitant]
  58. ASPIRIN [Concomitant]
  59. PLAVIX [Concomitant]
  60. MONOPRIL [Concomitant]
  61. HYDROCHLOROTHIAZIDE [Concomitant]
  62. ASTELIN [Concomitant]
  63. KLONOPIN [Concomitant]
  64. DYNACIRC [Concomitant]
  65. FORTICAL [Concomitant]
  66. OXYGEN [Concomitant]
  67. METANX [Concomitant]
  68. ALBUTEROL [Concomitant]
  69. SPIRIVA [Concomitant]
  70. FLONASE [Concomitant]
  71. BACTRBAN [Concomitant]
  72. MICRONASE [Concomitant]
  73. CIPRO [Concomitant]
  74. PEPCID [Concomitant]
  75. ISORDIL [Concomitant]
  76. VASOTEC [Concomitant]
  77. INSULIN [Concomitant]
  78. FISH OIL [Concomitant]
  79. CORAL CALCIUM [Concomitant]
  80. GEMFIBROZIL [Concomitant]
  81. CATAPRES [Concomitant]
  82. ASPIRIN [Concomitant]
  83. MULTI-VITAMINS [Concomitant]
  84. BENADRYL [Concomitant]
  85. SOLU-MEDROL [Concomitant]

REACTIONS (42)
  - ABDOMINAL PAIN [None]
  - ACUTE SINUSITIS [None]
  - ADNEXA UTERI CYST [None]
  - ANXIETY [None]
  - AORTIC STENOSIS [None]
  - ARTERIOSCLEROSIS CORONARY ARTERY [None]
  - ASTHMA [None]
  - BLOOD PRESSURE INADEQUATELY CONTROLLED [None]
  - BLOOD PRESSURE INCREASED [None]
  - BRADYCARDIA [None]
  - CARDIAC DISORDER [None]
  - CARDIAC FAILURE CONGESTIVE [None]
  - CARDIOMYOPATHY [None]
  - CAROTID ARTERY STENOSIS [None]
  - CORONARY ARTERY OCCLUSION [None]
  - DEPRESSION [None]
  - DIABETES MELLITUS INADEQUATE CONTROL [None]
  - HYPERCHOLESTEROLAEMIA [None]
  - HYPERKALAEMIA [None]
  - HYPERLIPIDAEMIA [None]
  - HYPERTENSION [None]
  - HYPERTENSIVE HEART DISEASE [None]
  - HYPONATRAEMIA [None]
  - HYPOTENSION [None]
  - MITRAL VALVE INCOMPETENCE [None]
  - NEPHROPATHY [None]
  - OBESITY [None]
  - PALPITATIONS [None]
  - POLYDIPSIA [None]
  - PULMONARY HYPERTENSION [None]
  - PULMONARY OEDEMA [None]
  - RENAL FAILURE CHRONIC [None]
  - SLEEP APNOEA SYNDROME [None]
  - SUBCLAVIAN ARTERY STENOSIS [None]
  - SUBCUTANEOUS ABSCESS [None]
  - SYNCOPE [None]
  - TREATMENT NONCOMPLIANCE [None]
  - TREMOR [None]
  - TRICUSPID VALVE INCOMPETENCE [None]
  - URINARY TRACT INFECTION [None]
  - VASCULAR GRAFT OCCLUSION [None]
  - WOUND INFECTION STAPHYLOCOCCAL [None]
